FAERS Safety Report 14234031 (Version 1)
Quarter: 2017Q4

REPORT INFORMATION
  Report Type: Spontaneous
  Country: US (occurrence: US)
  Receive Date: 20171129
  Receipt Date: 20171129
  Transmission Date: 20180321
  Serious: No
  Sender: FDA-Public Use
  Company Number: US-JNJFOC-20171114523

PATIENT
  Age: 87 Year
  Sex: Female
  Weight: 73.48 kg

DRUGS (1)
  1. TYLENOL [Suspect]
     Active Substance: ACETAMINOPHEN
     Indication: PAIN
     Dosage: NO MORE THAN TWICE A DAY WHEN NEEDED
     Route: 065

REACTIONS (1)
  - Incorrect dose administered [Unknown]
